FAERS Safety Report 15297029 (Version 1)
Quarter: 2018Q3

REPORT INFORMATION
  Report Type: Spontaneous
  Country: ES (occurrence: ES)
  Receive Date: 20180820
  Receipt Date: 20180820
  Transmission Date: 20181010
  Serious: Yes (Hospitalization)
  Sender: FDA-Public Use
  Company Number: ES-TEVA-2018-ES-943837

PATIENT
  Age: 98 Year
  Sex: Female

DRUGS (3)
  1. METFORMINA (1359A) [Suspect]
     Active Substance: METFORMIN HYDROCHLORIDE
     Route: 048
     Dates: start: 20180709, end: 20180709
  2. BISOPROLOL [Interacting]
     Active Substance: BISOPROLOL
     Route: 048
     Dates: start: 20180709, end: 20180709
  3. TRAZODONA (3160A) [Interacting]
     Active Substance: TRAZODONE HYDROCHLORIDE
     Route: 048
     Dates: start: 20180709, end: 20180709

REACTIONS (4)
  - Drug interaction [Recovered/Resolved]
  - Bradycardia [Recovered/Resolved]
  - Hypotension [Recovered/Resolved]
  - Wrong patient received medication [Recovered/Resolved]

NARRATIVE: CASE EVENT DATE: 20180709
